FAERS Safety Report 14552898 (Version 1)
Quarter: 2018Q1

REPORT INFORMATION
  Report Type: Spontaneous
  Country: SG (occurrence: SG)
  Receive Date: 20180220
  Receipt Date: 20180220
  Transmission Date: 20180509
  Serious: Yes (Other)
  Sender: FDA-Public Use
  Company Number: SG-CLINIGEN GROUP PLC/ CLINIGEN HEALTHCARE LTD-SG-CLGN-18-00045

PATIENT
  Age: 11 Year
  Sex: Female

DRUGS (2)
  1. CARDIOXANE [Suspect]
     Active Substance: DEXRAZOXANE HYDROCHLORIDE
     Indication: CARDIOVASCULAR EVENT PROPHYLAXIS
  2. DOXORUBICIN [Concomitant]
     Active Substance: DOXORUBICIN
     Indication: EWING^S SARCOMA

REACTIONS (1)
  - Off label use [Unknown]
